FAERS Safety Report 21359905 (Version 1)
Quarter: 2022Q3

REPORT INFORMATION
  Report Type: Spontaneous
  Country: FR (occurrence: FR)
  Receive Date: 20220921
  Receipt Date: 20220921
  Transmission Date: 20221027
  Serious: Yes (Hospitalization)
  Sender: FDA-Public Use
  Company Number: None

PATIENT
  Age: 67 Year
  Sex: Female

DRUGS (8)
  1. ONDANSETRON [Suspect]
     Active Substance: ONDANSETRON
     Indication: Chemotherapy side effect prophylaxis
     Dosage: ROA-20053000
     Route: 048
     Dates: start: 20220614, end: 20220808
  2. IRINOTECAN [Suspect]
     Active Substance: IRINOTECAN
     Indication: Adenocarcinoma of colon
     Dosage: ROA-20045000
     Route: 042
     Dates: end: 20220808
  3. IRINOTECAN [Suspect]
     Active Substance: IRINOTECAN
     Dosage: ROA-20045000
     Route: 042
     Dates: start: 20220712, end: 20220712
  4. ATROPINE [Suspect]
     Active Substance: ATROPINE
     Indication: Chemotherapy side effect prophylaxis
     Dosage: ROA-20045000
     Route: 042
     Dates: start: 20220614, end: 20220808
  5. LEUCOVORIN CALCIUM [Suspect]
     Active Substance: LEUCOVORIN CALCIUM
     Indication: Chemotherapy side effect prophylaxis
     Dosage: ROA-20045000
     Route: 042
     Dates: start: 20220614, end: 20220808
  6. METHYLPREDNISOLONE [Suspect]
     Active Substance: METHYLPREDNISOLONE
     Indication: Chemotherapy side effect prophylaxis
     Dosage: ROA-20045000
     Route: 042
     Dates: start: 20220614, end: 20220712
  7. METHYLPREDNISOLONE [Suspect]
     Active Substance: METHYLPREDNISOLONE
     Dosage: ROA-20045000
     Route: 042
     Dates: start: 20220726, end: 20220808
  8. FLUOROURACIL [Concomitant]
     Active Substance: FLUOROURACIL
     Indication: Product used for unknown indication

REACTIONS (1)
  - Thrombocytopenic purpura [Recovered/Resolved]

NARRATIVE: CASE EVENT DATE: 20220712
